FAERS Safety Report 13535070 (Version 1)
Quarter: 2017Q2

REPORT INFORMATION
  Report Type: Spontaneous
  Country: BR (occurrence: BR)
  Receive Date: 20170511
  Receipt Date: 20170511
  Transmission Date: 20170830
  Serious: Yes (Life-Threatening, Hospitalization, Other)
  Sender: FDA-Public Use
  Company Number: BR-ASTRAZENECA-2017SE49153

PATIENT
  Age: 67 Year
  Sex: Female

DRUGS (3)
  1. LEXAPRO [Suspect]
     Active Substance: ESCITALOPRAM OXALATE
     Dosage: 20.0MG ONCE/SINGLE ADMINISTRATION
     Route: 048
     Dates: start: 20170507, end: 20170507
  2. SEROQUEL [Suspect]
     Active Substance: QUETIAPINE FUMARATE
     Dosage: 25.0MG ONCE/SINGLE ADMINISTRATION
     Route: 048
     Dates: start: 20170507, end: 20170507
  3. ALPRAZOLAM. [Suspect]
     Active Substance: ALPRAZOLAM
     Dosage: 1.0MG ONCE/SINGLE ADMINISTRATION
     Route: 048
     Dates: start: 20170507, end: 20170507

REACTIONS (6)
  - Heart rate decreased [Unknown]
  - Stupor [Not Recovered/Not Resolved]
  - Foreign body aspiration [Unknown]
  - Loss of consciousness [Not Recovered/Not Resolved]
  - Hypotension [Unknown]
  - Suicide attempt [Recovered/Resolved with Sequelae]

NARRATIVE: CASE EVENT DATE: 20170507
